FAERS Safety Report 23683653 (Version 3)
Quarter: 2025Q2

REPORT INFORMATION
  Report Type: Spontaneous
  Country: US (occurrence: US)
  Receive Date: 20240328
  Receipt Date: 20250527
  Transmission Date: 20250716
  Serious: No
  Sender: SANOFI AVENTIS
  Company Number: US-SA-SAC20240326001014

PATIENT
  Age: 50 Year
  Sex: Female

DRUGS (1)
  1. DUPIXENT [Suspect]
     Active Substance: DUPILUMAB
     Indication: Eosinophilic oesophagitis
     Dosage: 300 MG, QW
     Route: 058

REACTIONS (7)
  - Dysphagia [Recovering/Resolving]
  - Musculoskeletal stiffness [Unknown]
  - Sinusitis [Recovered/Resolved]
  - Myalgia [Unknown]
  - Injection site pain [Unknown]
  - Injection site swelling [Unknown]
  - Therapeutic response unexpected [Unknown]
